FAERS Safety Report 16072499 (Version 2)
Quarter: 2019Q2

REPORT INFORMATION
  Report Type: Report from Study
  Country: ES (occurrence: ES)
  Receive Date: 20190314
  Receipt Date: 20190614
  Transmission Date: 20190711
  Serious: Yes (Other)
  Sender: FDA-Public Use
  Company Number: ES-TEVA-2019-ES-1023828

PATIENT
  Sex: Male

DRUGS (1)
  1. COPAXONE [Suspect]
     Active Substance: GLATIRAMER ACETATE
     Indication: RELAPSING-REMITTING MULTIPLE SCLEROSIS
     Route: 058
     Dates: start: 20160411

REACTIONS (4)
  - Multiple sclerosis relapse [Unknown]
  - Hemiparesis [Unknown]
  - Paralysis [Unknown]
  - Facial paralysis [Unknown]

NARRATIVE: CASE EVENT DATE: 2018
